FAERS Safety Report 22654909 (Version 1)
Quarter: 2023Q2

REPORT INFORMATION
  Report Type: Spontaneous
  Country: None (occurrence: US)
  Receive Date: 20230629
  Receipt Date: 20230629
  Transmission Date: 20230722
  Serious: Yes (Other)
  Sender: FDA-Public Use
  Company Number: US-Crown Laboratories, Inc.-2143245

PATIENT
  Sex: Female

DRUGS (1)
  1. PANOXYL [Suspect]
     Active Substance: BENZOYL PEROXIDE
     Indication: Acne
     Route: 061

REACTIONS (1)
  - Eye injury [Recovering/Resolving]

NARRATIVE: CASE EVENT DATE: 20230623
